FAERS Safety Report 20289324 (Version 2)
Quarter: 2022Q3

REPORT INFORMATION
  Report Type: Spontaneous
  Country: IN (occurrence: IN)
  Receive Date: 20220104
  Receipt Date: 20220923
  Transmission Date: 20221026
  Serious: Yes (Death, Other)
  Sender: FDA-Public Use
  Company Number: IN-SUN PHARMACEUTICAL INDUSTRIES LTD-2021R1-322185

PATIENT
  Age: 64 Year
  Sex: Female

DRUGS (3)
  1. NIMODIPINE [Suspect]
     Active Substance: NIMODIPINE
     Indication: Reversible cerebral vasoconstriction syndrome
     Dosage: 60 MILLIGRAM, 1DOSE/4HOUR
     Route: 048
  2. TELMISARTAN [Concomitant]
     Active Substance: TELMISARTAN
     Indication: Reversible cerebral vasoconstriction syndrome
     Dosage: UNK
     Route: 065
  3. LEVETIRACETAM [Concomitant]
     Active Substance: LEVETIRACETAM
     Indication: Reversible cerebral vasoconstriction syndrome
     Dosage: UNK
     Route: 042

REACTIONS (3)
  - Sepsis [Fatal]
  - Condition aggravated [Unknown]
  - COVID-19 [Unknown]
